FAERS Safety Report 4789288-5 (Version None)
Quarter: 2005Q3

REPORT INFORMATION
  Report Type: 
  Country: None (occurrence: None)
  Receive Date: 20050929
  Receipt Date: 20050819
  Transmission Date: 20060218
  Serious: No
  Sender: FDA-Public Use
  Company Number: 05P-163-0308499-00

PATIENT
  Age: 41 Year
  Sex: Female
  Weight: 118 kg

DRUGS (8)
  1. HUMIRA [Suspect]
     Indication: RHEUMATOID ARTHRITIS
     Dosage: SEE IMAGE
     Route: 058
     Dates: start: 20050520, end: 20050714
  2. HUMIRA [Suspect]
     Indication: RHEUMATOID ARTHRITIS
     Dosage: SEE IMAGE
     Route: 058
     Dates: start: 20050728
  3. METHOTREXATE [Concomitant]
  4. PREDNISONE [Concomitant]
  5. OXYCOCET [Concomitant]
  6. ZOLPIDEM TARTRATE [Concomitant]
  7. FOLIC ACID [Concomitant]
  8. SERTRALINE HYDROCHLORIDE [Concomitant]

REACTIONS (1)
  - DRUG INEFFECTIVE [None]
